FAERS Safety Report 20070521 (Version 1)
Quarter: 2021Q4

REPORT INFORMATION
  Report Type: Spontaneous
  Country: GB (occurrence: GB)
  Receive Date: 20211115
  Receipt Date: 20211115
  Transmission Date: 20220303
  Serious: Yes (Congenital Anomaly, Other)
  Sender: FDA-Public Use
  Company Number: GB-ABBVIE-21K-167-4160011-00

PATIENT
  Sex: Male

DRUGS (1)
  1. EPILIM [Suspect]
     Active Substance: VALPROATE SODIUM
     Indication: Maternal exposure timing unspecified
     Route: 064

REACTIONS (13)
  - Dysmorphism [Not Recovered/Not Resolved]
  - Diabetes mellitus inadequate control [Unknown]
  - Temperature regulation disorder [Unknown]
  - Prominent epicanthal folds [Not Recovered/Not Resolved]
  - Cytogenetic abnormality [Unknown]
  - Autism spectrum disorder [Not Recovered/Not Resolved]
  - Low set ears [Not Recovered/Not Resolved]
  - Congenital nose malformation [Not Recovered/Not Resolved]
  - Chromosomal deletion [Not Recovered/Not Resolved]
  - Congenital myopia [Not Recovered/Not Resolved]
  - Strabismus congenital [Not Recovered/Not Resolved]
  - Developmental delay [Not Recovered/Not Resolved]
  - Foetal exposure during pregnancy [Unknown]
